FAERS Safety Report 18871363 (Version 1)
Quarter: 2021Q1

REPORT INFORMATION
  Report Type: Spontaneous
  Country: CN (occurrence: CN)
  Receive Date: 20210210
  Receipt Date: 20210210
  Transmission Date: 20210420
  Serious: Yes (Other)
  Sender: FDA-Public Use
  Company Number: NVSC2021CN027944

PATIENT
  Age: 39 Year
  Sex: Male
  Weight: 63 kg

DRUGS (7)
  1. TRILEPTAL [Suspect]
     Active Substance: OXCARBAZEPINE
     Indication: EPILEPSY
     Dosage: 0.6 G, BID
     Route: 048
     Dates: start: 20200624, end: 20200723
  2. DEPAKINE [Suspect]
     Active Substance: VALPROATE SODIUM
     Indication: MENTAL DISORDER
     Dosage: 0.75 G, BID
     Route: 048
     Dates: start: 20200624, end: 20200713
  3. TRIHEXYPHENIDYL HYDROCHLORIDE. [Concomitant]
     Active Substance: TRIHEXYPHENIDYL HYDROCHLORIDE
     Indication: EXTRAPYRAMIDAL DISORDER
     Dosage: 2 MG, BID
     Route: 048
     Dates: start: 20200624, end: 20200721
  4. PHENOLPHTHALEIN [Suspect]
     Active Substance: PHENOLPHTHALEIN
     Indication: CONSTIPATION
     Dosage: 0.2 G, QD
     Route: 048
     Dates: start: 20200624, end: 20200701
  5. PHENOLPHTHALEIN [Suspect]
     Active Substance: PHENOLPHTHALEIN
     Dosage: 0.1 G, BID
     Route: 048
     Dates: start: 20200701, end: 20200720
  6. CLONAZEPAM. [Concomitant]
     Active Substance: CLONAZEPAM
     Indication: SLEEP DISORDER
     Dosage: 2 MG, BID
     Route: 048
     Dates: start: 20200624, end: 20200722
  7. DEPAKINE [Suspect]
     Active Substance: VALPROATE SODIUM
     Dosage: 1.25 G, QD
     Route: 048
     Dates: start: 20200713, end: 20200720

REACTIONS (1)
  - Intestinal obstruction [Recovering/Resolving]

NARRATIVE: CASE EVENT DATE: 20200721
